FAERS Safety Report 9280224 (Version 1)
Quarter: 2013Q2

REPORT INFORMATION
  Report Type: Spontaneous
  Country: US (occurrence: None)
  Receive Date: 20130507
  Receipt Date: 20130507
  Transmission Date: 20140414
  Serious: Yes (Other)
  Sender: FDA-Public Use
  Company Number: None

PATIENT
  Age: 23 Year
  Sex: Female
  Weight: 90.72 kg

DRUGS (1)
  1. VYVANCE [Suspect]
     Dosage: ONCE DAILY
     Route: 048

REACTIONS (6)
  - Affective disorder [None]
  - Thinking abnormal [None]
  - Irritability [None]
  - Depression [None]
  - Blood pressure increased [None]
  - Partner stress [None]
